FAERS Safety Report 20224510 (Version 1)
Quarter: 2021Q4

REPORT INFORMATION
  Report Type: Spontaneous
  Country: US (occurrence: US)
  Receive Date: 20211223
  Receipt Date: 20211223
  Transmission Date: 20220303
  Serious: No
  Sender: FDA-Public Use
  Company Number: US-BEH-2021139774

PATIENT
  Age: 51 Year
  Sex: Female
  Weight: 69.75 kg

DRUGS (7)
  1. HIZENTRA [Suspect]
     Active Substance: HUMAN IMMUNOGLOBULIN G
     Indication: Immunodeficiency common variable
     Dosage: 4 INJECTIONS, QW
     Route: 030
     Dates: start: 2017, end: 2021
  2. HIZENTRA [Suspect]
     Active Substance: HUMAN IMMUNOGLOBULIN G
     Dosage: 4 INJECTIONS
     Route: 065
     Dates: start: 20211006, end: 20211006
  3. LAMICTAL [Concomitant]
     Active Substance: LAMOTRIGINE
  4. CYMBALTA [Concomitant]
     Active Substance: DULOXETINE HYDROCHLORIDE
  5. ALPRAZOLAM [Concomitant]
     Active Substance: ALPRAZOLAM
  6. ACETAMINOPHEN\CAFFEINE [Concomitant]
     Active Substance: ACETAMINOPHEN\CAFFEINE
  7. BENADRYL [Concomitant]
     Active Substance: DIPHENHYDRAMINE HYDROCHLORIDE

REACTIONS (11)
  - Infusion related reaction [Unknown]
  - Recalled product administered [Unknown]
  - Product quality issue [Unknown]
  - Pruritus [Unknown]
  - Recalled product administered [Unknown]
  - Product quality issue [Unknown]
  - Urticaria [Unknown]
  - Recalled product administered [Unknown]
  - Product quality issue [Unknown]
  - No adverse event [Unknown]
  - Off label use [Unknown]

NARRATIVE: CASE EVENT DATE: 20211006
